FAERS Safety Report 24333514 (Version 3)
Quarter: 2025Q3

REPORT INFORMATION
  Report Type: Report from Study
  Country: US (occurrence: US)
  Receive Date: 20240918
  Receipt Date: 20250816
  Transmission Date: 20251020
  Serious: No
  Sender: ALEXION PHARMACEUTICALS
  Company Number: US-AstraZeneca-CH-00706573A

PATIENT
  Sex: Female

DRUGS (1)
  1. ULTOMIRIS [Suspect]
     Active Substance: RAVULIZUMAB-CWVZ
     Indication: Myasthenia gravis
     Route: 065

REACTIONS (7)
  - Mobility decreased [Unknown]
  - Therapeutic response shortened [Unknown]
  - COVID-19 [Unknown]
  - Asthenia [Unknown]
  - Loss of personal independence in daily activities [Unknown]
  - Malaise [Unknown]
  - General physical health deterioration [Unknown]
